FAERS Safety Report 12851896 (Version 1)
Quarter: 2016Q4

REPORT INFORMATION
  Report Type: Report from Study
  Country: US (occurrence: US)
  Receive Date: 20161017
  Receipt Date: 20161017
  Transmission Date: 20170207
  Serious: Yes (Other)
  Sender: FDA-Public Use
  Company Number: US-AMGEN-USASL2016126323

PATIENT
  Age: 69 Year
  Sex: Female
  Weight: 70.75 kg

DRUGS (2)
  1. REPATHA [Suspect]
     Active Substance: EVOLOCUMAB
     Indication: CORONARY ARTERY DISEASE
  2. REPATHA [Suspect]
     Active Substance: EVOLOCUMAB
     Indication: HYPERCHOLESTEROLAEMIA
     Dosage: 140 MG, Q2WK
     Route: 058
     Dates: start: 201603

REACTIONS (7)
  - Wrong technique in product usage process [Unknown]
  - Respiratory tract congestion [Unknown]
  - Nasopharyngitis [Unknown]
  - Epistaxis [Recovered/Resolved]
  - Nasal congestion [Recovered/Resolved]
  - Injection site bruising [Unknown]
  - Injection site pain [Unknown]

NARRATIVE: CASE EVENT DATE: 2016
